FAERS Safety Report 17711874 (Version 1)
Quarter: 2020Q2

REPORT INFORMATION
  Report Type: Spontaneous
  Country: US (occurrence: US)
  Receive Date: 20200427
  Receipt Date: 20200427
  Transmission Date: 20200714
  Serious: Yes (Hospitalization)
  Sender: FDA-Public Use
  Company Number: US-ASTRAZENECA-2020SE55162

PATIENT
  Age: 95 Year
  Sex: Male
  Weight: 70.3 kg

DRUGS (4)
  1. SPIRIVA [Concomitant]
     Active Substance: TIOTROPIUM BROMIDE MONOHYDRATE
     Indication: INHALATION THERAPY
     Route: 055
  2. PULMICORT FLEXHALER [Suspect]
     Active Substance: BUDESONIDE
     Indication: DYSPNOEA
     Route: 055
  3. ATROVENT [Concomitant]
     Active Substance: IPRATROPIUM BROMIDE
     Indication: LUNG DISORDER
     Dosage: 1, TWO TIMES A DAY
     Route: 055
  4. PULMICORT FLEXHALER [Suspect]
     Active Substance: BUDESONIDE
     Indication: DYSPNOEA
     Dosage: TAKES 3 TIMES OR DOUBLE DOSE OF PULMICORT ABOUT TWICE A MONTH
     Route: 055

REACTIONS (4)
  - Aspiration [Unknown]
  - Mastication disorder [Unknown]
  - Intentional device misuse [Unknown]
  - Pneumonia [Recovered/Resolved]
